FAERS Safety Report 15440222 (Version 1)
Quarter: 2018Q3

REPORT INFORMATION
  Report Type: Spontaneous
  Country: US (occurrence: US)
  Receive Date: 20180928
  Receipt Date: 20180928
  Transmission Date: 20181010
  Serious: Yes (Other)
  Sender: FDA-Public Use
  Company Number: US-TEVA-2018-US-957684

PATIENT
  Age: 17 Year
  Sex: Female
  Weight: 113 kg

DRUGS (1)
  1. LAMOTRIGINE. [Suspect]
     Active Substance: LAMOTRIGINE
     Indication: SEIZURE
     Dates: start: 2017

REACTIONS (2)
  - Seizure [Unknown]
  - Weight increased [Unknown]

NARRATIVE: CASE EVENT DATE: 20180914
